FAERS Safety Report 12680592 (Version 2)
Quarter: 2016Q3

REPORT INFORMATION
  Report Type: Report from Study
  Country: ES (occurrence: ES)
  Receive Date: 20160824
  Receipt Date: 20160907
  Transmission Date: 20161109
  Serious: Yes (Hospitalization)
  Sender: FDA-Public Use
  Company Number: ES-ROCHE-1813654

PATIENT
  Age: 73 Year
  Sex: Male

DRUGS (9)
  1. LORAZEPAM. [Concomitant]
     Active Substance: LORAZEPAM
     Indication: ANXIETY
     Route: 065
     Dates: start: 20151103
  2. ESCITALOPRAM OXALATE. [Concomitant]
     Active Substance: ESCITALOPRAM OXALATE
     Indication: ANXIETY
     Route: 065
     Dates: start: 20151103
  3. SUMIAL [Concomitant]
     Active Substance: PROPRANOLOL HYDROCHLORIDE
     Indication: TREMOR
     Route: 065
     Dates: start: 20151103
  4. RITUXIMAB [Suspect]
     Active Substance: RITUXIMAB
     Route: 042
     Dates: start: 20150619, end: 20150619
  5. RITUXIMAB [Suspect]
     Active Substance: RITUXIMAB
     Indication: CHRONIC LYMPHOCYTIC LEUKAEMIA
     Route: 042
     Dates: start: 20150618, end: 20150618
  6. RITUXIMAB [Suspect]
     Active Substance: RITUXIMAB
     Dosage: ON 05/NOV/2015, RECEIVED MOST RECENT DOSE OF RITUXIMAB 500 MG/M2.
     Route: 042
     Dates: start: 20150715
  7. QUETIAPINA [Concomitant]
     Active Substance: QUETIAPINE
     Indication: ANXIETY
     Route: 065
     Dates: start: 20160602
  8. BENDAMUSTINE [Suspect]
     Active Substance: BENDAMUSTINE
     Indication: CHRONIC LYMPHOCYTIC LEUKAEMIA
     Dosage: ON 06/NOV/2015, RECEIVED MOST RECENT DOSE OF BENDAMUSTINE 70 MG/M2.
     Route: 042
     Dates: start: 20150618
  9. ARTEDIL [Concomitant]
     Indication: HYPERTENSION

REACTIONS (3)
  - Activities of daily living impaired [Unknown]
  - Nervous system disorder [Unknown]
  - Cognitive disorder [Unknown]

NARRATIVE: CASE EVENT DATE: 20160804
